FAERS Safety Report 16285379 (Version 1)
Quarter: 2019Q2

REPORT INFORMATION
  Report Type: Spontaneous
  Country: US (occurrence: US)
  Receive Date: 20190508
  Receipt Date: 20190508
  Transmission Date: 20190711
  Serious: Yes (Other)
  Sender: FDA-Public Use
  Company Number: US-FRESENIUS KABI-FK201905220

PATIENT
  Age: 59 Year
  Sex: Male

DRUGS (3)
  1. PROPOFOL (MANUFACTURER UNKNOWN) [Suspect]
     Active Substance: PROPOFOL
     Indication: SEDATIVE THERAPY
     Dosage: UNKNOWN
     Route: 065
  2. TRANEXAMIC ACID (MANUFACTURER UNKNOWN) [Suspect]
     Active Substance: TRANEXAMIC ACID
     Route: 040
  3. TRANEXAMIC ACID (MANUFACTURER UNKNOWN) [Suspect]
     Active Substance: TRANEXAMIC ACID
     Indication: PROCOAGULANT THERAPY
     Route: 040

REACTIONS (5)
  - Vascular stent thrombosis [Recovered/Resolved]
  - Product use in unapproved indication [Recovered/Resolved]
  - Hypotension [Recovered/Resolved]
  - Arterial occlusive disease [Recovered/Resolved]
  - Acute myocardial infarction [Recovered/Resolved]
